FAERS Safety Report 5282965-1 (Version None)
Quarter: 2007Q1

REPORT INFORMATION
  Report Type: 
  Country: None (occurrence: None)
  Receive Date: 20070328
  Receipt Date: 20070328
  Transmission Date: 20070707
  Serious: Yes (Other)
  Sender: FDA-Public Use
  Company Number: None

PATIENT
  Age: 73 Year
  Sex: Male
  Weight: 88.5 kg

DRUGS (5)
  1. SIMVASTATIN [Suspect]
  2. COUMADIN [Concomitant]
  3. FLUVASTATIN [Concomitant]
  4. RAMIPRIL [Concomitant]
  5. QUINIDINE GLUCONATE [Concomitant]

REACTIONS (1)
  - MYALGIA [None]
